FAERS Safety Report 16405305 (Version 1)
Quarter: 2019Q2

REPORT INFORMATION
  Report Type: Spontaneous
  Country: CA (occurrence: CA)
  Receive Date: 20190607
  Receipt Date: 20190607
  Transmission Date: 20190711
  Serious: Yes (Disabling, Other)
  Sender: FDA-Public Use
  Company Number: CA-009507513-1906CAN000137

PATIENT
  Sex: Female

DRUGS (1)
  1. JANUMET [Suspect]
     Active Substance: METFORMIN HYDROCHLORIDE\SITAGLIPTIN PHOSPHATE
     Indication: TYPE 2 DIABETES MELLITUS
     Dosage: STRENGTH:50/850 (UNITS UNSPECIFIED), BID
     Route: 065
     Dates: start: 2017, end: 201905

REACTIONS (2)
  - Pancreatic atrophy [Unknown]
  - Arthralgia [Unknown]
